FAERS Safety Report 18287446 (Version 4)
Quarter: 2025Q1

REPORT INFORMATION
  Report Type: Other
  Country: CA (occurrence: CA)
  Receive Date: 20200921
  Receipt Date: 20250123
  Transmission Date: 20250409
  Serious: Yes (Death, Other)
  Sender: GLENMARK
  Company Number: CA-GLENMARK PHARMACEUTICALS-2020GMK049631

PATIENT

DRUGS (19)
  1. GABAPENTIN [Suspect]
     Active Substance: GABAPENTIN
     Indication: Pain management
     Route: 065
  2. GABAPENTIN [Suspect]
     Active Substance: GABAPENTIN
     Indication: Musculoskeletal pain
  3. GABAPENTIN [Suspect]
     Active Substance: GABAPENTIN
     Indication: Arthralgia
  4. BACLOFEN [Suspect]
     Active Substance: BACLOFEN
     Indication: Pain management
     Route: 065
  5. BACLOFEN [Suspect]
     Active Substance: BACLOFEN
     Indication: Musculoskeletal pain
  6. BACLOFEN [Suspect]
     Active Substance: BACLOFEN
     Indication: Arthralgia
  7. KETAMINE [Suspect]
     Active Substance: KETAMINE
     Indication: Pain management
     Route: 065
  8. KETAMINE [Suspect]
     Active Substance: KETAMINE
     Indication: Musculoskeletal pain
  9. KETAMINE [Suspect]
     Active Substance: KETAMINE
     Indication: Arthralgia
  10. METOCLOPRAMIDE [Suspect]
     Active Substance: METOCLOPRAMIDE
     Indication: Pain management
     Route: 065
  11. METOCLOPRAMIDE [Suspect]
     Active Substance: METOCLOPRAMIDE
     Indication: Musculoskeletal pain
  12. METOCLOPRAMIDE [Suspect]
     Active Substance: METOCLOPRAMIDE
     Indication: Arthralgia
  13. NORTRIPTYLINE HYDROCHLORIDE [Suspect]
     Active Substance: NORTRIPTYLINE HYDROCHLORIDE
     Indication: Pain management
     Route: 065
  14. NORTRIPTYLINE HYDROCHLORIDE [Suspect]
     Active Substance: NORTRIPTYLINE HYDROCHLORIDE
     Indication: Musculoskeletal pain
  15. NORTRIPTYLINE HYDROCHLORIDE [Suspect]
     Active Substance: NORTRIPTYLINE HYDROCHLORIDE
     Indication: Arthralgia
  16. NORTRIPTYLINE [Suspect]
     Active Substance: NORTRIPTYLINE
     Indication: Pain management
     Route: 065
  17. MORPHINE [Suspect]
     Active Substance: MORPHINE
     Indication: Pain management
     Route: 048
  18. MORPHINE [Suspect]
     Active Substance: MORPHINE
     Indication: Musculoskeletal pain
  19. MORPHINE [Suspect]
     Active Substance: MORPHINE
     Indication: Arthralgia

REACTIONS (8)
  - Death [Fatal]
  - Spinal cordotomy [Fatal]
  - Delirium [Recovered/Resolved]
  - Sedation [Recovered/Resolved]
  - Off label use [Unknown]
  - Drug ineffective [Unknown]
  - Drug ineffective for unapproved indication [Unknown]
  - Product use in unapproved indication [Unknown]
